FAERS Safety Report 6464822-8 (Version None)
Quarter: 2009Q4

REPORT INFORMATION
  Report Type: 
  Country: None (occurrence: None)
  Receive Date: 20091201
  Receipt Date: 20091119
  Transmission Date: 20100525
  Serious: Yes (Hospitalization)
  Sender: FDA-Public Use
  Company Number: US-ELI_LILLY_AND_COMPANY-US200911005403

PATIENT
  Sex: Male

DRUGS (1)
  1. FORTEO [Suspect]
     Dates: start: 20080101

REACTIONS (3)
  - EMPHYSEMA [None]
  - PNEUMONIA [None]
  - PULMONARY EMBOLISM [None]
